FAERS Safety Report 15641172 (Version 1)
Quarter: 2018Q4

REPORT INFORMATION
  Report Type: Spontaneous
  Country: US (occurrence: US)
  Receive Date: 20181120
  Receipt Date: 20181120
  Transmission Date: 20190205
  Serious: No
  Sender: FDA-Public Use
  Company Number: US-ANIPHARMA-2018-US-004055

PATIENT
  Age: 69 Year
  Sex: Male
  Weight: 113.4 kg

DRUGS (14)
  1. CALICUM [Concomitant]
  2. ADVAIR HFA [Concomitant]
     Active Substance: FLUTICASONE PROPIONATE\SALMETEROL XINAFOATE
  3. PRAVASTATIN. [Concomitant]
     Active Substance: PRAVASTATIN
     Dosage: 40 MG
  4. RANITIDINE. [Concomitant]
     Active Substance: RANITIDINE
  5. IRON [Concomitant]
     Active Substance: IRON
  6. MAGNESIUM [Concomitant]
     Active Substance: MAGNESIUM
  7. MONTELUKAST [Concomitant]
     Active Substance: MONTELUKAST SODIUM
     Dosage: 10 MG
  8. VENTOLIN [Concomitant]
     Active Substance: ALBUTEROL SULFATE
  9. HYDROCHOROTHIAZIDE [Concomitant]
     Active Substance: HYDROCHLOROTHIAZIDE
     Dosage: 25 MG
  10. DILTIAZEM. [Suspect]
     Active Substance: DILTIAZEM
     Dosage: 120 MG DAILY
     Route: 048
     Dates: start: 201509
  11. ATROVENT [Concomitant]
     Active Substance: IPRATROPIUM BROMIDE
  12. ASPIRIN. [Concomitant]
     Active Substance: ASPIRIN
     Dosage: 81 MG
  13. FLECAINIDE ACETATE TABLETS 150 MG [Suspect]
     Active Substance: FLECAINIDE ACETATE
     Indication: ATRIAL FIBRILLATION
     Dosage: 2. 150 MG TABLETS DAILY
     Route: 048
     Dates: start: 201509
  14. IPRATROPIUM BROMIDE. [Concomitant]
     Active Substance: IPRATROPIUM BROMIDE

REACTIONS (2)
  - Hunger [Unknown]
  - Weight increased [Unknown]

NARRATIVE: CASE EVENT DATE: 201509
